FAERS Safety Report 9341930 (Version 2)
Quarter: 2013Q4

REPORT INFORMATION
  Report Type: Spontaneous
  Country: US (occurrence: US)
  Receive Date: 20130611
  Receipt Date: 20131021
  Transmission Date: 20140711
  Serious: Yes (Other)
  Sender: FDA-Public Use
  Company Number: US-BAYER-2013-068657

PATIENT
  Age: 31 Year
  Sex: Female
  Weight: 76.19 kg

DRUGS (4)
  1. MIRENA [Suspect]
     Indication: CONTRACEPTION
     Dosage: 20 MCG/24HR, CONT
     Route: 015
     Dates: start: 20090422, end: 20110624
  2. ZYRTEC [Concomitant]
     Indication: MULTIPLE ALLERGIES
     Dosage: 10 MG, DAILY
  3. TINDAMAX [Concomitant]
     Indication: BACTERIAL VAGINOSIS
     Dosage: 2 MG, BID
  4. ESTRACE [Concomitant]

REACTIONS (6)
  - Uterine perforation [None]
  - Injury [None]
  - Abdominal pain [None]
  - Emotional distress [None]
  - Procedural pain [None]
  - Device issue [None]
